FAERS Safety Report 21627031 (Version 1)
Quarter: 2022Q4

REPORT INFORMATION
  Report Type: Spontaneous
  Country: CA (occurrence: CA)
  Receive Date: 20221122
  Receipt Date: 20221122
  Transmission Date: 20230112
  Serious: Yes (Death, Hospitalization)
  Sender: FDA-Public Use
  Company Number: None

PATIENT
  Age: 79 Year
  Sex: Female

DRUGS (12)
  1. ROSUVASTATIN CALCIUM [Suspect]
     Active Substance: ROSUVASTATIN CALCIUM
     Indication: Product used for unknown indication
     Dosage: 1 EVERY 1 DAYS
  2. CHOLECALCIFEROL [Concomitant]
     Active Substance: CHOLECALCIFEROL
  3. ESCITALOPRAM [Concomitant]
     Active Substance: ESCITALOPRAM OXALATE
  4. EZETIMIBE [Concomitant]
     Active Substance: EZETIMIBE
  5. FUROSEMIDE [Concomitant]
     Active Substance: FUROSEMIDE
     Route: 065
  6. GABAPENTIN [Concomitant]
     Active Substance: GABAPENTIN
  7. OLODATEROL\TIOTROPIUM [Concomitant]
     Active Substance: OLODATEROL\TIOTROPIUM
  8. LORAZEPAM [Concomitant]
     Active Substance: LORAZEPAM
     Route: 065
  9. METOPROLOL [Concomitant]
     Active Substance: METOPROLOL
     Route: 065
  10. NITROGLYCERIN [Concomitant]
     Active Substance: NITROGLYCERIN
  11. PANTOPRAZOLE [Concomitant]
     Active Substance: PANTOPRAZOLE
  12. PERINDOPRIL [Concomitant]
     Active Substance: PERINDOPRIL

REACTIONS (5)
  - Hypotension [Fatal]
  - Metabolic acidosis [Fatal]
  - Multiple organ dysfunction syndrome [Fatal]
  - Respiratory distress [Fatal]
  - Rhabdomyolysis [Fatal]
